FAERS Safety Report 17366612 (Version 2)
Quarter: 2020Q1

REPORT INFORMATION
  Report Type: Spontaneous
  Country: JP (occurrence: JP)
  Receive Date: 20200204
  Receipt Date: 20200213
  Transmission Date: 20200409
  Serious: Yes (Other)
  Sender: FDA-Public Use
  Company Number: JP-JNJFOC-20200153291

PATIENT

DRUGS (1)
  1. CONCERTA [Suspect]
     Active Substance: METHYLPHENIDATE HYDROCHLORIDE
     Indication: PRODUCT USED FOR UNKNOWN INDICATION
     Dosage: METHYLPHENIDATE HYDROCHLORIDE:18MG
     Route: 048

REACTIONS (2)
  - Blood catecholamines increased [Not Recovered/Not Resolved]
  - Phaeochromocytoma [Not Recovered/Not Resolved]
